FAERS Safety Report 9371097 (Version 1)
Quarter: 2013Q2

REPORT INFORMATION
  Report Type: Spontaneous
  Country: US (occurrence: None)
  Receive Date: 20130626
  Receipt Date: 20130626
  Transmission Date: 20140414
  Serious: Yes (Hospitalization)
  Sender: FDA-Public Use
  Company Number: None

PATIENT
  Age: 21 Year
  Sex: Female
  Weight: 81.65 kg

DRUGS (7)
  1. GAMUNEX [Suspect]
     Route: 042
     Dates: start: 201305
  2. GAMUNEX [Suspect]
  3. CLARITIN-D [Concomitant]
  4. PROZAC [Concomitant]
  5. YAZ [Concomitant]
  6. EXCEDRINE MIGRAINE [Concomitant]
  7. PROVENTIL [Concomitant]

REACTIONS (3)
  - Urticaria [None]
  - Dyspnoea [None]
  - Infusion related reaction [None]
